FAERS Safety Report 18288772 (Version 1)
Quarter: 2020Q3

REPORT INFORMATION
  Report Type: Spontaneous
  Country: US (occurrence: US)
  Receive Date: 20200918
  Receipt Date: 20200918
  Transmission Date: 20201103
  Serious: Yes (Death)
  Sender: FDA-Public Use
  Company Number: None

PATIENT
  Age: 63 Year
  Sex: Male
  Weight: 88 kg

DRUGS (2)
  1. MYCOPHENOLATE  250MG CAP [Suspect]
     Active Substance: MYCOPHENOLATE MOFETIL
     Indication: LUNG TRANSPLANT
     Route: 048
     Dates: start: 20180920
  2. TACROLIMUS 1MG CAPSULES [Suspect]
     Active Substance: TACROLIMUS
     Indication: LUNG TRANSPLANT
     Route: 048
     Dates: start: 20180907, end: 20200720

REACTIONS (4)
  - Acute respiratory failure [None]
  - Hypoxia [None]
  - Donor specific antibody present [None]
  - Lung transplant rejection [None]

NARRATIVE: CASE EVENT DATE: 20200819
